FAERS Safety Report 7397561-X (Version None)
Quarter: 2011Q2

REPORT INFORMATION
  Report Type: 
  Country: None (occurrence: None)
  Receive Date: 20110406
  Receipt Date: 20110401
  Transmission Date: 20111010
  Serious: Yes (Other)
  Sender: FDA-Public Use
  Company Number: CA-PFIZER INC-2011073869

PATIENT
  Age: 26 Year
  Sex: Male

DRUGS (6)
  1. VEGA [Concomitant]
     Dosage: UNK
  2. OLANZAPINE [Concomitant]
     Dosage: UNK
  3. CANESORAL [Suspect]
  4. ZELDOX [Suspect]
     Dosage: UNK
     Dates: start: 20100101
  5. FISH OIL [Concomitant]
     Dosage: UNK
  6. ZOPICLONE [Concomitant]
     Indication: SLEEP DISORDER
     Dosage: UNK

REACTIONS (5)
  - VISION BLURRED [None]
  - GLOSSODYNIA [None]
  - ORAL FUNGAL INFECTION [None]
  - TONGUE DISCOLOURATION [None]
  - ELECTRIC SHOCK [None]
